FAERS Safety Report 4395436-1 (Version None)
Quarter: 2004Q3

REPORT INFORMATION
  Report Type: 
  Country: None (occurrence: None)
  Receive Date: 20040713
  Receipt Date: 20040518
  Transmission Date: 20050211
  Serious: Yes (Other)
  Sender: FDA-Public Use
  Company Number: 200415452GDDC

PATIENT
  Age: 29 Year
  Sex: Female

DRUGS (8)
  1. ARAVA [Suspect]
     Indication: RHEUMATOID ARTHRITIS
     Route: 048
     Dates: start: 20021101, end: 20030822
  2. ARALEN [Concomitant]
     Indication: RHEUMATOID ARTHRITIS
     Dosage: DOSE: 75 OR 150
     Route: 048
     Dates: start: 20030101, end: 20030822
  3. METHOTREXATE [Concomitant]
     Indication: RHEUMATOID ARTHRITIS
     Dosage: DOSE: UNK
     Route: 048
     Dates: start: 19930101, end: 20030822
  4. QUESTRAN [Concomitant]
     Route: 048
     Dates: start: 20031015, end: 20031025
  5. METHYLPREDNISOLONE [Concomitant]
     Indication: RHEUMATOID ARTHRITIS
     Dosage: DOSE: UNK
     Route: 030
     Dates: start: 20031006, end: 20031006
  6. ACETAMINOPHEN [Concomitant]
     Indication: RHEUMATOID ARTHRITIS
     Dosage: DOSE: UNK
     Route: 048
     Dates: start: 20031006
  7. FOLIC ACID [Concomitant]
     Dosage: DOSE: UNK
     Dates: start: 20031006
  8. CALCIUM [Concomitant]
     Dosage: DOSE: UNK
     Route: 048
     Dates: start: 20031006

REACTIONS (3)
  - CERVIX DYSTOCIA [None]
  - DRUG EXPOSURE DURING PREGNANCY [None]
  - PREMATURE RUPTURE OF MEMBRANES [None]
